FAERS Safety Report 7907151-5 (Version None)
Quarter: 2011Q4

REPORT INFORMATION
  Report Type: 
  Country: None (occurrence: None)
  Receive Date: 20111110
  Receipt Date: 20111107
  Transmission Date: 20120403
  Serious: Yes (Death, Other)
  Sender: FDA-Public Use
  Company Number: JP-ABBOTT-11P-087-0858582-00

PATIENT
  Sex: Male

DRUGS (3)
  1. HUMIRA [Suspect]
     Indication: CROHN'S DISEASE
     Route: 058
     Dates: start: 20110427, end: 20110427
  2. HUMIRA [Suspect]
  3. HUMIRA [Suspect]

REACTIONS (3)
  - ATRIAL FIBRILLATION [None]
  - INFECTION [None]
  - ATRIAL FLUTTER [None]
